FAERS Safety Report 10141763 (Version 2)
Quarter: 2014Q2

REPORT INFORMATION
  Report Type: Spontaneous
  Country: FR (occurrence: FR)
  Receive Date: 20140429
  Receipt Date: 20140609
  Transmission Date: 20141212
  Serious: Yes (Hospitalization)
  Sender: FDA-Public Use
  Company Number: FR-PFIZER INC-2014117422

PATIENT
  Age: 73 Year
  Sex: Male

DRUGS (10)
  1. DOXORUBICIN HCL [Suspect]
     Dosage: UNK
     Dates: start: 20131203
  2. VINCRISTINE SULFATE [Suspect]
     Dosage: UNK
     Dates: start: 20131203
  3. CYCLOPHOSPHAMIDE [Suspect]
     Dosage: UNK
     Dates: start: 20131203
  4. PREDNISONE [Suspect]
     Dosage: UNK
     Dates: start: 20131203
  5. MOPRAL [Concomitant]
  6. CACIT [Concomitant]
  7. CORTANCYL [Concomitant]
  8. CELECTOL [Concomitant]
  9. NOVONORM [Concomitant]
  10. TIORFAN [Concomitant]

REACTIONS (7)
  - General physical health deterioration [Unknown]
  - Dehydration [Unknown]
  - Diarrhoea [Unknown]
  - Decreased appetite [Unknown]
  - Agranulocytosis [Unknown]
  - Thrombocytopenia [Unknown]
  - Anaemia [Unknown]
